FAERS Safety Report 22208801 (Version 2)
Quarter: 2023Q2

REPORT INFORMATION
  Report Type: Report from Study
  Country: US (occurrence: US)
  Receive Date: 20230413
  Receipt Date: 20230421
  Transmission Date: 20230721
  Serious: Yes (Other)
  Sender: FDA-Public Use
  Company Number: US-002147023-NVSC2023US082372

PATIENT
  Sex: Male

DRUGS (2)
  1. ENTRESTO [Suspect]
     Active Substance: SACUBITRIL\VALSARTAN
     Indication: Product used for unknown indication
     Dosage: 49/51 MG, QD
     Route: 065
     Dates: start: 2018
  2. ENTRESTO [Suspect]
     Active Substance: SACUBITRIL\VALSARTAN
     Dosage: 24/26 MG, BID
     Route: 065

REACTIONS (13)
  - Atrial fibrillation [Unknown]
  - Atrial thrombosis [Recovering/Resolving]
  - Cerebrovascular accident [Unknown]
  - Transient ischaemic attack [Unknown]
  - Dyspnoea [Unknown]
  - Blood glucose increased [Unknown]
  - Back pain [Unknown]
  - Slow speech [Unknown]
  - Movement disorder [Unknown]
  - Weight decreased [Unknown]
  - Heart rate irregular [Unknown]
  - Swelling [Unknown]
  - Hypotension [Unknown]
